FAERS Safety Report 12122348 (Version 1)
Quarter: 2016Q1

REPORT INFORMATION
  Report Type: Spontaneous
  Country: FI (occurrence: FI)
  Receive Date: 20160226
  Receipt Date: 20160226
  Transmission Date: 20160526
  Serious: Yes (Hospitalization, Other)
  Sender: FDA-Public Use
  Company Number: FI-BRISTOL-MYERS SQUIBB COMPANY-BMS-2016-014153

PATIENT
  Sex: Male

DRUGS (3)
  1. LOSARTAN. [Concomitant]
     Active Substance: LOSARTAN
     Indication: BLOOD PRESSURE ABNORMAL
     Dosage: 100 MG, QD
     Route: 048
  2. METFORMIN HYDROCHLORIDE. [Suspect]
     Active Substance: METFORMIN HYDROCHLORIDE
     Indication: TYPE 2 DIABETES MELLITUS
     Dosage: 1000 MG, BID
     Route: 048
  3. SIMVASTATIN. [Concomitant]
     Active Substance: SIMVASTATIN
     Indication: HYPERLIPIDAEMIA
     Dosage: 20 MG, QD
     Route: 048

REACTIONS (10)
  - Infection [Recovering/Resolving]
  - Blood glucose decreased [Recovered/Resolved]
  - Blood creatinine increased [Unknown]
  - Cardiac fibrillation [Unknown]
  - Lactic acidosis [Unknown]
  - Alcohol poisoning [Unknown]
  - Blindness [Recovered/Resolved]
  - Dehydration [Unknown]
  - Chills [Recovering/Resolving]
  - Malnutrition [Unknown]
